FAERS Safety Report 5319628-X (Version None)
Quarter: 2007Q2

REPORT INFORMATION
  Report Type: 
  Country: None (occurrence: None)
  Receive Date: 20070503
  Receipt Date: 20070424
  Transmission Date: 20071010
  Serious: Yes (Other)
  Sender: FDA-Public Use
  Company Number: 2007AL001676

PATIENT
  Age: 78 Year
  Sex: Male

DRUGS (6)
  1. SPIRONOLACTONE [Suspect]
     Indication: HYPOKALAEMIA
     Dosage: 25 MG;QD;PO
     Route: 048
     Dates: start: 20060608, end: 20060611
  2. LISINOPRIL [Concomitant]
  3. AMLODIPINE [Concomitant]
  4. BENDROFLUMETHIAZIDE [Concomitant]
  5. GLUCOSAMINE [Concomitant]
  6. CHONDROITIN SULFATE [Concomitant]

REACTIONS (3)
  - COUGH [None]
  - DYSPNOEA [None]
  - HAEMOPTYSIS [None]
